FAERS Safety Report 8459190-6 (Version None)
Quarter: 2012Q2

REPORT INFORMATION
  Report Type: 
  Country: None (occurrence: None)
  Receive Date: 20120622
  Receipt Date: 20120612
  Transmission Date: 20120825
  Serious: Yes (Hospitalization)
  Sender: FDA-Public Use
  Company Number: JP-VERTEX PHARMACEUTICALS INC.-AE-2012-008919

PATIENT
  Age: 62 Year
  Sex: Female

DRUGS (11)
  1. PEG-INTRON [Concomitant]
     Route: 058
     Dates: start: 20120530
  2. REBETOL [Concomitant]
     Route: 048
     Dates: start: 20120502, end: 20120515
  3. INCIVEK [Suspect]
     Route: 048
     Dates: start: 20120425, end: 20120515
  4. OLOPATADINE HCL [Concomitant]
     Route: 048
  5. MYSER [Concomitant]
     Route: 061
  6. REBETOL [Concomitant]
     Indication: HEPATITIS C
     Route: 048
     Dates: start: 20120418, end: 20120424
  7. INCIVEK [Suspect]
     Indication: HEPATITIS C
     Route: 048
     Dates: start: 20120418, end: 20120424
  8. REBETOL [Concomitant]
     Route: 048
     Dates: start: 20120530
  9. CELESTAMINE TAB [Concomitant]
     Route: 048
  10. PEG-INTRON [Concomitant]
     Indication: HEPATITIS C
     Route: 058
     Dates: start: 20120418, end: 20120515
  11. REBETOL [Concomitant]
     Route: 048
     Dates: start: 20120425, end: 20120501

REACTIONS (1)
  - RENAL IMPAIRMENT [None]
